FAERS Safety Report 6137845-6 (Version None)
Quarter: 2009Q1

REPORT INFORMATION
  Report Type: 
  Country: None (occurrence: None)
  Receive Date: 20090331
  Receipt Date: 20090319
  Transmission Date: 20090719
  Serious: Yes (Death, Other)
  Sender: FDA-Public Use
  Company Number: AU-BAXTER-2009BH004531

PATIENT
  Age: 65 Year
  Sex: Female

DRUGS (2)
  1. SUPRANE [Suspect]
     Indication: ANAESTHESIA
     Route: 055
     Dates: start: 20090101, end: 20090101
  2. ACETAMINOPHEN [Concomitant]
     Indication: DRUG USE FOR UNKNOWN INDICATION
     Route: 048

REACTIONS (4)
  - DEATH [None]
  - HEPATIC FAILURE [None]
  - MALAISE [None]
  - RED BLOOD CELL COUNT DECREASED [None]
